FAERS Safety Report 4708879-0 (Version None)
Quarter: 2005Q3

REPORT INFORMATION
  Report Type: 
  Country: None (occurrence: None)
  Receive Date: 20050705
  Receipt Date: 20050620
  Transmission Date: 20060218
  Serious: Yes (Life-Threatening, Hospitalization, Other)
  Sender: FDA-Public Use
  Company Number: 2005FR-00048

PATIENT
  Age: 59 Year
  Sex: Female
  Weight: 75 kg

DRUGS (3)
  1. METFORMIN HCL [Suspect]
     Indication: DIABETES MELLITUS
     Dosage: 500MG, TID, ORAL
     Route: 048
  2. ORLISTAT [Concomitant]
  3. CIMETIDINE [Concomitant]

REACTIONS (9)
  - ACUTE PRERENAL FAILURE [None]
  - AGITATION [None]
  - CIRCULATORY COLLAPSE [None]
  - DRUG INTERACTION [None]
  - DUODENAL ULCER [None]
  - DYSARTHRIA [None]
  - LACTIC ACIDOSIS [None]
  - SHOCK [None]
  - VISION BLURRED [None]
